FAERS Safety Report 5314569-6 (Version None)
Quarter: 2007Q2

REPORT INFORMATION
  Report Type: 
  Country: None (occurrence: None)
  Receive Date: 20070425
  Receipt Date: 20070416
  Transmission Date: 20071010
  Serious: Yes (Hospitalization)
  Sender: FDA-Public Use
  Company Number: 232980K07USA

PATIENT
  Age: 50 Year
  Sex: Male

DRUGS (2)
  1. REBIF [Suspect]
     Indication: MULTIPLE SCLEROSIS
     Dosage: 44 MCG, 3 IN 1 WEEKS, SUBCUTANEOUS
     Route: 058
     Dates: start: 20060918
  2. ASPIRIN [Concomitant]

REACTIONS (3)
  - ABDOMINAL PAIN [None]
  - GASTROINTESTINAL ULCER [None]
  - WEIGHT DECREASED [None]
